FAERS Safety Report 21354051 (Version 1)
Quarter: 2022Q3

REPORT INFORMATION
  Report Type: Spontaneous
  Country: US (occurrence: None)
  Receive Date: 20220919
  Receipt Date: 20220919
  Transmission Date: 20221027
  Serious: Yes (Life-Threatening, Hospitalization)
  Sender: FDA-Public Use
  Company Number: None

PATIENT
  Age: 57 Year
  Sex: Female

DRUGS (1)
  1. PIQRAY [Suspect]
     Active Substance: ALPELISIB
     Indication: Neoplasm malignant
     Dosage: FREQUENCY : DAILY;?
     Route: 048
     Dates: start: 20220530

REACTIONS (7)
  - Fatigue [None]
  - Asthenia [None]
  - Abdominal pain upper [None]
  - Diabetic ketoacidosis [None]
  - Gastritis [None]
  - Colitis [None]
  - Dehydration [None]

NARRATIVE: CASE EVENT DATE: 20220907
